FAERS Safety Report 10038465 (Version 1)
Quarter: 2014Q1

REPORT INFORMATION
  Report Type: Spontaneous
  Country: US (occurrence: None)
  Receive Date: 20140306
  Receipt Date: 20140306
  Transmission Date: 20141002
  Serious: Yes (Other)
  Sender: FDA-Public Use
  Company Number: 163-21880-13064399

PATIENT
  Age: 63 Year
  Sex: Male

DRUGS (3)
  1. REVLIMID [Suspect]
     Indication: PLASMA CELL MYELOMA
     Dosage: TEMPORARILY INTERRUPTED?21 IN 28 D
     Route: 048
     Dates: start: 20110826
  2. KYPROLIS [Concomitant]
  3. DEXAMETHASONE(DEXAMETHASONE) [Concomitant]

REACTIONS (2)
  - Platelet count decreased [None]
  - Plasma cell myeloma [None]
